FAERS Safety Report 13374456 (Version 1)
Quarter: 2017Q1

REPORT INFORMATION
  Report Type: Spontaneous
  Country: JP (occurrence: JP)
  Receive Date: 20170327
  Receipt Date: 20170327
  Transmission Date: 20170429
  Serious: Yes (Hospitalization)
  Sender: FDA-Public Use
  Company Number: JP-TEVA-2017-JP-000848J

PATIENT
  Age: 33 Year
  Sex: Female
  Weight: 48 kg

DRUGS (3)
  1. AMOLIN CAPSULES 250 [Suspect]
     Active Substance: AMOXICILLIN
     Indication: INFECTION PROPHYLAXIS
     Dosage: 750 MILLIGRAM DAILY;
     Route: 048
     Dates: start: 20170130, end: 20170131
  2. ISOVIST [Suspect]
     Active Substance: IOTROLAN
     Indication: SALPINGOGRAM
     Dosage: 1 DOSAGE FORMS DAILY;
     Route: 067
     Dates: start: 20170130, end: 20170130
  3. CLOMID [Concomitant]
     Active Substance: CLOMIPHENE CITRATE
     Route: 065

REACTIONS (2)
  - Rash generalised [Recovering/Resolving]
  - Pruritus [Recovering/Resolving]

NARRATIVE: CASE EVENT DATE: 20170130
